FAERS Safety Report 8877707 (Version 1)
Quarter: 2012Q4

REPORT INFORMATION
  Report Type: 
  Country: BR (occurrence: BR)
  Receive Date: 20121024
  Receipt Date: 20121024
  Transmission Date: 20130627
  Serious: Yes (Death)
  Sender: FDA-Public Use
  Company Number: PHHY2012BR094801

PATIENT
  Age: 85 Year
  Sex: Female
  Weight: 62 kg

DRUGS (6)
  1. EXELON [Suspect]
     Indication: DEMENTIA ALZHEIMER^S TYPE
     Dosage: 3 DF, daily
     Route: 048
  2. OTRIMAR [Concomitant]
     Indication: DYSPEPSIA
     Dosage: 1 DF, daily
     Route: 048
  3. ANADOR [Concomitant]
     Indication: PAIN
  4. DORFLEX [Concomitant]
     Indication: PAIN
  5. DIPYRONE [Concomitant]
     Indication: PAIN
  6. NEOSEDITINA [Concomitant]
     Indication: HYPERTENSION
     Dosage: 1 DF, QD
     Route: 048

REACTIONS (4)
  - Myocardial infarction [Fatal]
  - Dyspnoea [Fatal]
  - Herpes virus infection [Not Recovered/Not Resolved]
  - Pain [Not Recovered/Not Resolved]
